FAERS Safety Report 17666289 (Version 1)
Quarter: 2020Q2

REPORT INFORMATION
  Report Type: Spontaneous
  Country: JP (occurrence: JP)
  Receive Date: 20200414
  Receipt Date: 20200414
  Transmission Date: 20200713
  Serious: Yes (Other)
  Sender: FDA-Public Use
  Company Number: JP-PFIZER INC-2020150651

PATIENT
  Age: 50 Year
  Sex: Female

DRUGS (1)
  1. SELARA 50MG [Suspect]
     Active Substance: EPLERENONE
     Dosage: UNK
     Route: 048

REACTIONS (3)
  - Eyelid ptosis [Unknown]
  - Dermatochalasis [Unknown]
  - Seizure [Unknown]
